FAERS Safety Report 6466019-4 (Version None)
Quarter: 2009Q4

REPORT INFORMATION
  Report Type: 
  Country: None (occurrence: None)
  Receive Date: 20091202
  Receipt Date: 20091123
  Transmission Date: 20100525
  Serious: Yes (Other)
  Sender: FDA-Public Use
  Company Number: CH-JNJFOC-20091200213

PATIENT
  Age: 35 Year
  Sex: Female
  Weight: 52 kg

DRUGS (6)
  1. ALFENTANIL [Suspect]
     Indication: ANAESTHESIA
     Route: 042
  2. PARACETAMOL [Suspect]
  3. PARACETAMOL [Suspect]
     Indication: ANAESTHESIA
  4. OXYTOCIN [Suspect]
     Indication: ANAESTHESIA
  5. KETOROLAC TROMETHAMINE [Suspect]
     Indication: ANAESTHESIA
  6. PROPOFOL [Suspect]
     Indication: ANAESTHESIA

REACTIONS (3)
  - ANAESTHETIC COMPLICATION [None]
  - DYSKINESIA [None]
  - DYSTONIA [None]
